FAERS Safety Report 9216185 (Version 1)
Quarter: 2013Q2

REPORT INFORMATION
  Report Type: Spontaneous
  Country: BR (occurrence: None)
  Receive Date: 20130403
  Receipt Date: 20130403
  Transmission Date: 20140414
  Serious: Yes (Other)
  Sender: FDA-Public Use
  Company Number: DSU-2013-02457

PATIENT
  Age: 68 Year
  Sex: Female
  Weight: 68 kg

DRUGS (2)
  1. OLMETEC HCT [Suspect]
     Indication: HYPERTENSION
     Dosage: 20/12.5 MG (QD), PER ORAL
     Route: 048
     Dates: start: 2011, end: 201302
  2. PROCIMAX (CITALOPRAM HYDROBROMDIE) [Concomitant]

REACTIONS (2)
  - Blood pressure increased [None]
  - Uterovaginal prolapse [None]
